FAERS Safety Report 6571554-4 (Version None)
Quarter: 2010Q1

REPORT INFORMATION
  Report Type: 
  Country: None (occurrence: None)
  Receive Date: 20100205
  Receipt Date: 20100201
  Transmission Date: 20100710
  Serious: Yes (Death)
  Sender: FDA-Public Use
  Company Number: JP-JNJFOC-20100201838

PATIENT
  Age: 79 Year
  Sex: Female

DRUGS (3)
  1. ITRIZOLE [Suspect]
     Indication: DRUG USE FOR UNKNOWN INDICATION
     Route: 041
  2. ITRIZOLE [Suspect]
     Route: 041
  3. ALTAT [Concomitant]
     Indication: GASTRIC ULCER
     Route: 048

REACTIONS (2)
  - DIZZINESS [None]
  - PULMONARY MYCOSIS [None]
